FAERS Safety Report 8611719-0 (Version None)
Quarter: 2012Q3

REPORT INFORMATION
  Report Type: 
  Country: None (occurrence: None)
  Receive Date: 20120822
  Receipt Date: 20120814
  Transmission Date: 20120928
  Serious: Yes (Other)
  Sender: FDA-Public Use
  Company Number: US-BAYER-201033339NA

PATIENT
  Age: 40 Year
  Sex: Female
  Weight: 81.633 kg

DRUGS (7)
  1. ANUSOL-HC [HYDROCORTISONE ACETATE] [Concomitant]
     Dosage: 25MG/25MG, 1 EVERY 12 HOURS AS NEEDED
     Route: 054
  2. ZITHROMAX [Concomitant]
     Dosage: 250 MG, TAKE 2 TABLETS ON DAY 1, THEN 1 TABLET DAILY DAYS 2 THROUGH 5
  3. IBUPROFEN [Concomitant]
  4. YASMIN [Suspect]
  5. FLUTICASONE PROPIONATE/SALMETEROL [Concomitant]
     Indication: ASTHMA
     Dosage: UNK UNK, QD
     Dates: start: 20010101, end: 20090101
  6. PROTONIX [Concomitant]
     Dosage: UNK
     Dates: start: 20060707
  7. YAZ [Suspect]
     Indication: PREMENSTRUAL SYNDROME
     Dosage: UNK
     Route: 048
     Dates: start: 20060501, end: 20060701

REACTIONS (3)
  - THROMBOSIS [None]
  - DEEP VEIN THROMBOSIS [None]
  - PULMONARY EMBOLISM [None]
